FAERS Safety Report 10330852 (Version 1)
Quarter: 2014Q3

REPORT INFORMATION
  Report Type: Report from Study
  Country: GB (occurrence: GB)
  Receive Date: 20140722
  Receipt Date: 20140722
  Transmission Date: 20150326
  Serious: Yes (Death)
  Sender: FDA-Public Use
  Company Number: GB-ROCHE-1438700

PATIENT
  Age: 41 Year
  Sex: Male

DRUGS (12)
  1. POTASSIUM CHLORIDE. [Concomitant]
     Active Substance: POTASSIUM CHLORIDE
     Indication: OESOPHAGEAL CARCINOMA
     Route: 042
     Dates: end: 20121210
  2. MAGNESIUM SULPHATE [Concomitant]
     Active Substance: MAGNESIUM SULFATE
     Indication: OESOPHAGEAL CARCINOMA
     Route: 042
     Dates: end: 20121210
  3. DEXAMETHASONE. [Concomitant]
     Active Substance: DEXAMETHASONE
     Route: 048
     Dates: end: 20121210
  4. CAPECITABINE [Suspect]
     Active Substance: CAPECITABINE
     Indication: OESOPHAGEAL CARCINOMA
     Route: 048
     Dates: end: 20121210
  5. SODIUM CHLORIDE. [Concomitant]
     Active Substance: SODIUM CHLORIDE
     Indication: OESOPHAGEAL CARCINOMA
     Route: 042
     Dates: end: 20121210
  6. EPIRUBICIN [Concomitant]
     Active Substance: EPIRUBICIN
     Indication: OESOPHAGEAL CARCINOMA
     Route: 040
     Dates: end: 20121210
  7. DEXAMETHASONE. [Concomitant]
     Active Substance: DEXAMETHASONE
     Indication: OESOPHAGEAL CARCINOMA
     Route: 048
     Dates: end: 20121210
  8. MANNITOL 10% [Concomitant]
     Indication: OESOPHAGEAL CARCINOMA
     Route: 042
     Dates: end: 20121210
  9. LOPERAMIDE [Concomitant]
     Active Substance: LOPERAMIDE
     Indication: OESOPHAGEAL CARCINOMA
     Route: 048
     Dates: end: 20121210
  10. DOMPERIDONE [Concomitant]
     Active Substance: DOMPERIDONE
     Indication: OESOPHAGEAL CARCINOMA
     Route: 048
     Dates: end: 20121210
  11. ONDANSETRON [Concomitant]
     Active Substance: ONDANSETRON
     Indication: OESOPHAGEAL CARCINOMA
     Route: 048
     Dates: end: 20121210
  12. CISPLATIN. [Concomitant]
     Active Substance: CISPLATIN
     Indication: OESOPHAGEAL CARCINOMA
     Route: 042
     Dates: end: 20121210

REACTIONS (1)
  - Death [Fatal]
